FAERS Safety Report 4853328-5 (Version None)
Quarter: 2005Q4

REPORT INFORMATION
  Report Type: 
  Country: None (occurrence: None)
  Receive Date: 20051214
  Receipt Date: 20051205
  Transmission Date: 20060501
  Serious: Yes (Hospitalization)
  Sender: FDA-Public Use
  Company Number: FR-GLAXOSMITHKLINE-B0403206A

PATIENT
  Age: 72 Year
  Sex: Male

DRUGS (6)
  1. AUGMENTIN [Suspect]
     Route: 048
     Dates: start: 20050919, end: 20050926
  2. UMULINE [Concomitant]
     Route: 058
  3. CELECTOL [Concomitant]
     Indication: HYPERTENSION
     Dosage: 200MG PER DAY
     Route: 048
  4. AVLOCARDYL [Concomitant]
     Dosage: 40MG UNKNOWN
     Route: 048
     Dates: start: 20050924, end: 20050926
  5. ODRIK [Concomitant]
     Indication: HYPERTENSION
     Dosage: 2MG PER DAY
     Route: 048
     Dates: start: 20050615
  6. VITAMINE B1-B6-B12 [Concomitant]
     Indication: PROPHYLAXIS
     Dosage: 2UNIT PER DAY

REACTIONS (4)
  - DERMATITIS EXFOLIATIVE [None]
  - EOSINOPHILIA [None]
  - OEDEMA PERIPHERAL [None]
  - PRURITUS [None]
